FAERS Safety Report 4479954-3 (Version None)
Quarter: 2004Q4

REPORT INFORMATION
  Report Type: 
  Country: None (occurrence: None)
  Receive Date: 20041020
  Receipt Date: 20041012
  Transmission Date: 20050328
  Serious: Yes (Other)
  Sender: FDA-Public Use
  Company Number: US-BRISTOL-MYERS SQUIBB COMPANY-12736070

PATIENT
  Age: 48 Year
  Sex: Male

DRUGS (1)
  1. SERZONE [Suspect]
     Dates: start: 19990902, end: 20000720

REACTIONS (3)
  - DEPRESSION [None]
  - HEPATITIS C [None]
  - INSOMNIA [None]
